FAERS Safety Report 26209437 (Version 2)
Quarter: 2025Q4

REPORT INFORMATION
  Report Type: Spontaneous
  Country: US (occurrence: US)
  Receive Date: 20251229
  Receipt Date: 20251231
  Transmission Date: 20260117
  Serious: Yes (Other)
  Sender: PFIZER
  Company Number: US-GENENTECH-10000457318

PATIENT
  Age: 30 Year
  Sex: Female

DRUGS (3)
  1. SOLU-MEDROL [Suspect]
     Active Substance: METHYLPREDNISOLONE SODIUM SUCCINATE
     Indication: Multiple sclerosis
     Dosage: 100 MG
     Route: 042
  2. BENADRYL [Concomitant]
     Active Substance: DIPHENHYDRAMINE HYDROCHLORIDE
     Indication: Premedication
     Dosage: 50 MG
     Route: 042
  3. OCREVUS [Concomitant]
     Active Substance: OCRELIZUMAB
     Indication: Multiple sclerosis
     Dosage: UNK
     Dates: start: 202506

REACTIONS (13)
  - Oxygen saturation decreased [Recovered/Resolved]
  - Hypertension [Unknown]
  - Feeling abnormal [Unknown]
  - Dyspnoea [Unknown]
  - Heart rate decreased [Unknown]
  - Vision blurred [Unknown]
  - Migraine [Unknown]
  - Chest pain [Unknown]
  - Dizziness [Unknown]
  - Sinusitis [Unknown]
  - Vertigo [Unknown]
  - Headache [Unknown]
  - Asthenia [Unknown]

NARRATIVE: CASE EVENT DATE: 20251101
